FAERS Safety Report 4721622-4 (Version None)
Quarter: 2005Q3

REPORT INFORMATION
  Report Type: 
  Country: None (occurrence: None)
  Receive Date: 20050721
  Receipt Date: 20050111
  Transmission Date: 20060218
  Serious: No
  Sender: FDA-Public Use
  Company Number: US-BRISTOL-MYERS SQUIBB COMPANY-12821781

PATIENT
  Sex: Female

DRUGS (4)
  1. COUMADIN [Suspect]
  2. OXYTROL [Suspect]
     Route: 062
     Dates: start: 20041210
  3. ROBITUSSIN DAC [Suspect]
  4. DITROPAN [Concomitant]

REACTIONS (4)
  - APPLICATION SITE DERMATITIS [None]
  - APPLICATION SITE ERYTHEMA [None]
  - APPLICATION SITE PRURITUS [None]
  - RASH PRURITIC [None]
